FAERS Safety Report 10585679 (Version 3)
Quarter: 2015Q1

REPORT INFORMATION
  Report Type: Spontaneous
  Country: IE (occurrence: IE)
  Receive Date: 20141114
  Receipt Date: 20150108
  Transmission Date: 20150720
  Serious: Yes (Other)
  Sender: FDA-Public Use
  Company Number: GB-009507513-1410GBR010060

PATIENT
  Sex: Female

DRUGS (3)
  1. TRUSOPT [Suspect]
     Active Substance: DORZOLAMIDE HYDROCHLORIDE
     Dosage: 1 DROP TWICE DAILY
     Route: 047
     Dates: start: 20140916, end: 201410
  2. REFRESH CELLUVISC [Concomitant]
     Active Substance: CARBOXYMETHYLCELLULOSE SODIUM
     Dosage: DAILY DOSAGE: QDS (DOSE UNSPECIFIED)
  3. XALATAN [Concomitant]
     Active Substance: LATANOPROST
     Dosage: UNK, NOCTE

REACTIONS (4)
  - Eye pain [Not Recovered/Not Resolved]
  - Expired product administered [Unknown]
  - Eye irritation [Not Recovered/Not Resolved]
  - Ocular hyperaemia [Not Recovered/Not Resolved]

NARRATIVE: CASE EVENT DATE: 2014
